FAERS Safety Report 4660409-8 (Version None)
Quarter: 2005Q2

REPORT INFORMATION
  Report Type: 
  Country: None (occurrence: None)
  Receive Date: 20050427
  Receipt Date: 20050309
  Transmission Date: 20051028
  Serious: No
  Sender: FDA-Public Use
  Company Number: 213002

PATIENT
  Age: 51 Year
  Sex: Female

DRUGS (1)
  1. XOLAIR [Suspect]
     Indication: ASTHMA
     Dosage: 150 MG, 1/MONTH, UNK
     Route: 065
     Dates: start: 20040201

REACTIONS (1)
  - WHITE BLOOD CELL COUNT DECREASED [None]
